FAERS Safety Report 9159987 (Version 1)
Quarter: 2013Q1

REPORT INFORMATION
  Report Type: Spontaneous
  Country: LB (occurrence: None)
  Receive Date: 20130220
  Receipt Date: 20130220
  Transmission Date: 20140127
  Serious: Yes (Other)
  Sender: FDA-Public Use
  Company Number: VAL_01415_2013

PATIENT
  Sex: Male

DRUGS (5)
  1. CALCITRIOL [Suspect]
     Indication: PROSTATE CANCER
     Dosage: 4 DIVIDED DOSES, OVER 4 HOURS ON DAY 1 OF EACH TREATMENT WEEK
     Route: 048
  2. DOCETAXEL (DOCETAXEL) [Suspect]
     Indication: PROSTATE CANCER
     Dosage: [36 MG/M2, ON DAY 2 OF EACH WEEK]
     Route: 042
  3. ZOLEDRONIC ACID (ZOLEDRONIC ACID) [Suspect]
     Indication: PROSTATE CANCER
     Dosage: 4 MG, ON DAY 2 ON 1ST AND 5TH WEEK OF EACH CYCLE
     Route: 042
  4. DEXAMETHASONE (DEXAMETHASONE) [Suspect]
     Indication: PREMEDICATION
     Dosage: 8 MG GIVEN 12 + 1 H BEFORE AND 12 HOURS AFTER DOCETAXEL INFUSION
     Route: 048
  5. PARACETAMOL (PARACETAMOL) [Suspect]
     Indication: PREMEDICATION
     Dosage: 1000 MG WAS GIVEN BEFORE ZOLEDRONIC ACID INFUSION
     Route: 048

REACTIONS (27)
  - Thrombosis [None]
  - Nausea [None]
  - Diarrhoea [None]
  - Ageusia [None]
  - Polyneuropathy [None]
  - Onycholysis [None]
  - Dyspnoea [None]
  - Meningitis [None]
  - Anaemia [None]
  - Haematotoxicity [None]
  - Thrombocytopenia [None]
  - Vomiting [None]
  - Asthenia [None]
  - Leukopenia [None]
  - Decreased appetite [None]
  - Weight decreased [None]
  - Oedema [None]
  - Cystitis [None]
  - Constipation [None]
  - Colitis [None]
  - Urinary incontinence [None]
  - Haematuria [None]
  - Deafness [None]
  - Back pain [None]
  - Arthralgia [None]
  - Oesophagitis [None]
  - Epistaxis [None]
